FAERS Safety Report 21421504 (Version 1)
Quarter: 2022Q4

REPORT INFORMATION
  Report Type: Spontaneous
  Country: US (occurrence: US)
  Receive Date: 20221007
  Receipt Date: 20221007
  Transmission Date: 20230113
  Serious: No
  Sender: FDA-Public Use
  Company Number: US-JNJFOC-20220927143

PATIENT
  Sex: Male

DRUGS (1)
  1. IMODIUM MULTI-SYMPTOM RELIEF [Suspect]
     Active Substance: DIMETHICONE\LOPERAMIDE HYDROCHLORIDE
     Indication: Anal incontinence
     Dosage: 1 DOSE ON EVEN DAYS, 2 DOSES ON ODD DAYS?FREQUENCY A FEW TIMES PER YEAR
     Route: 065

REACTIONS (1)
  - Wrong technique in product usage process [Unknown]
